FAERS Safety Report 5855947-6 (Version None)
Quarter: 2008Q3

REPORT INFORMATION
  Report Type: 
  Country: None (occurrence: None)
  Receive Date: 20080825
  Receipt Date: 20080821
  Transmission Date: 20090109
  Serious: Yes (Other)
  Sender: FDA-Public Use
  Company Number: PHEH2008US06867

PATIENT
  Sex: Female
  Weight: 58.957 kg

DRUGS (3)
  1. COMBIPATCH [Suspect]
     Indication: MENOPAUSE
     Dosage: 50/140 TWICE WEEKLY
     Route: 062
     Dates: start: 20071201, end: 20080801
  2. COMBIPATCH [Suspect]
     Dosage: DOSE REDUCED
  3. MOBIC [Concomitant]
     Dosage: 7.5, QD

REACTIONS (2)
  - ABDOMINAL PAIN [None]
  - APPENDICECTOMY [None]
